FAERS Safety Report 7593626-8 (Version None)
Quarter: 2011Q2

REPORT INFORMATION
  Report Type: 
  Country: None (occurrence: None)
  Receive Date: 20110628
  Receipt Date: 20110613
  Transmission Date: 20111010
  Serious: Yes (Hospitalization)
  Sender: FDA-Public Use
  Company Number: TCI2011A03513

PATIENT
  Age: 68 Year
  Sex: Male

DRUGS (4)
  1. FASTIC (NATEGLINIDE) [Concomitant]
  2. BASEN (VOGLIBOSE) [Concomitant]
  3. TAKEPERON (LANSOPRAZOLE) [Concomitant]
  4. ACTOS [Suspect]
     Indication: DIABETES MELLITUS
     Dosage: 15 MG (15 MG, 1 D) PER ORAL,
     Route: 048
     Dates: start: 20100301

REACTIONS (2)
  - BLADDER CANCER [None]
  - PROSTATE CANCER [None]
